FAERS Safety Report 14596350 (Version 1)
Quarter: 2018Q1

REPORT INFORMATION
  Report Type: Spontaneous
  Country: FR (occurrence: FR)
  Receive Date: 20180303
  Receipt Date: 20180303
  Transmission Date: 20180509
  Serious: Yes (Other)
  Sender: FDA-Public Use
  Company Number: FR-AUROBINDO-AUR-APL-2018-010602

PATIENT
  Age: 49 Year
  Sex: Female
  Weight: 66 kg

DRUGS (9)
  1. PAROXETINE. [Suspect]
     Active Substance: PAROXETINE
     Indication: DEPRESSION
     Dosage: 20 MILLIGRAM
     Route: 048
     Dates: start: 20170116, end: 201712
  2. IBUPROFENE [Concomitant]
     Active Substance: IBUPROFEN
     Dosage: NON PR?CIS?E ()
     Route: 048
     Dates: start: 201701
  3. BROMAZEPAM [Concomitant]
     Active Substance: BROMAZEPAM
     Dosage: NON PR?CIS?E ()
     Route: 048
     Dates: start: 20161014
  4. TAMOXIFEN [Suspect]
     Active Substance: TAMOXIFEN
     Indication: BREAST CANCER
     Dosage: NON PR?CIS?E (1)
     Route: 048
     Dates: start: 2015, end: 201607
  5. SERESTA [Concomitant]
     Active Substance: OXAZEPAM
     Dosage: NON PR?CIS?E ()
     Route: 048
     Dates: start: 201510, end: 201512
  6. SERTRALINE [Concomitant]
     Active Substance: SERTRALINE HYDROCHLORIDE
     Route: 048
     Dates: start: 20160912, end: 20170115
  7. ZYMAD [Concomitant]
     Active Substance: CHOLECALCIFEROL
     Dosage: NON PR?CIS?E ()
     Route: 048
     Dates: start: 20161114
  8. EXEMESTANE. [Concomitant]
     Active Substance: EXEMESTANE
     Indication: BREAST CANCER
     Dosage: NON PR?CIS?E ()
     Route: 048
     Dates: start: 20161024, end: 20170130
  9. CODOLIPRANE [Concomitant]
     Active Substance: ACETAMINOPHEN\CODEINE PHOSPHATE
     Dosage: NON PR?CIS?E ()
     Route: 048
     Dates: start: 201701

REACTIONS (1)
  - Hepatic steatosis [Not Recovered/Not Resolved]

NARRATIVE: CASE EVENT DATE: 20171219
